FAERS Safety Report 16739297 (Version 2)
Quarter: 2019Q3

REPORT INFORMATION
  Report Type: Other
  Country: ES (occurrence: ES)
  Receive Date: 20190826
  Receipt Date: 20190828
  Transmission Date: 20191005
  Serious: Yes (Hospitalization, Other)
  Sender: FDA-Public Use
  Company Number: ES-DEXPHARM-20190637

PATIENT
  Age: 71 Year
  Sex: Male

DRUGS (7)
  1. IRBESARTAN. [Suspect]
     Active Substance: IRBESARTAN
     Indication: PRODUCT USED FOR UNKNOWN INDICATION
  2. ACENOCOUMAROL [Concomitant]
     Active Substance: ACENOCOUMAROL
  3. IRON [Concomitant]
     Active Substance: IRON
  4. FUROSEMIDE. [Suspect]
     Active Substance: FUROSEMIDE
     Indication: PRODUCT USED FOR UNKNOWN INDICATION
  5. DIGOXIN. [Concomitant]
     Active Substance: DIGOXIN
  6. TRIPTORELIN [Concomitant]
     Active Substance: TRIPTORELIN
  7. OMEPRAZOLE. [Suspect]
     Active Substance: OMEPRAZOLE
     Indication: PRODUCT USED FOR UNKNOWN INDICATION

REACTIONS (2)
  - Tubulointerstitial nephritis [Unknown]
  - Drug interaction [Unknown]
